FAERS Safety Report 21584960 (Version 1)
Quarter: 2022Q4

REPORT INFORMATION
  Report Type: Spontaneous
  Country: US (occurrence: US)
  Receive Date: 20221111
  Receipt Date: 20221111
  Transmission Date: 20230112
  Serious: Yes (Other)
  Sender: FDA-Public Use
  Company Number: US-PFIZER INC-202201290190

PATIENT
  Age: 44 Year
  Sex: Male

DRUGS (1)
  1. PAXLOVID [Suspect]
     Active Substance: NIRMATRELVIR\RITONAVIR
     Indication: COVID-19 treatment
     Dosage: UNK

REACTIONS (14)
  - Diarrhoea [Unknown]
  - Dehydration [Unknown]
  - Chest pain [Unknown]
  - Pain in extremity [Recovering/Resolving]
  - Anxiety [Unknown]
  - Headache [Unknown]
  - Muscle spasms [Unknown]
  - Burning sensation [Unknown]
  - Paraesthesia [Recovering/Resolving]
  - Tenderness [Recovering/Resolving]
  - Dysgeusia [Unknown]
  - Parosmia [Recovering/Resolving]
  - Anosmia [Unknown]
  - Vision blurred [Unknown]

NARRATIVE: CASE EVENT DATE: 20221109
